FAERS Safety Report 16658754 (Version 1)
Quarter: 2019Q3

REPORT INFORMATION
  Report Type: Spontaneous
  Country: US (occurrence: US)
  Receive Date: 20190801
  Receipt Date: 20190801
  Transmission Date: 20191004
  Serious: No
  Sender: FDA-Public Use
  Company Number: US-BIOMARINAP-US-2019-124976

PATIENT
  Sex: Female

DRUGS (1)
  1. NAGLAZYME [Suspect]
     Active Substance: GALSULFASE
     Indication: MUCOPOLYSACCHARIDOSIS
     Dosage: 45 MILLIGRAM, QW
     Route: 042
     Dates: start: 20190620

REACTIONS (3)
  - Mitral valve stenosis [Unknown]
  - Mitral valve incompetence [Unknown]
  - Aortic valve stenosis [Unknown]
